FAERS Safety Report 6754558-8 (Version None)
Quarter: 2010Q2

REPORT INFORMATION
  Report Type: 
  Country: None (occurrence: None)
  Receive Date: 20100603
  Receipt Date: 20100527
  Transmission Date: 20101027
  Serious: Yes (Other)
  Sender: FDA-Public Use
  Company Number: CHPA2010BR09189

PATIENT
  Sex: Male

DRUGS (1)
  1. BENEFIBER UNKNOWN (NCH) [Suspect]
     Dosage: 1 LEVEL SPOONFUL
     Route: 048
     Dates: start: 20100526, end: 20100526

REACTIONS (2)
  - DIARRHOEA HAEMORRHAGIC [None]
  - NAUSEA [None]
